FAERS Safety Report 10091756 (Version 2)
Quarter: 2014Q2

REPORT INFORMATION
  Report Type: Not Available
  Country: US (occurrence: US)
  Receive Date: 20140421
  Receipt Date: 20140421
  Transmission Date: 20141212
  Serious: Yes (Death)
  Sender: FDA-Public Use
  Company Number: US-ONYX-2014-0724

PATIENT
  Age: 56 Year
  Sex: Female

DRUGS (2)
  1. KYPROLIS [Suspect]
     Indication: PLASMA CELL MYELOMA
     Route: 042
     Dates: start: 20140325
  2. KYPROLIS [Suspect]
     Route: 042
     Dates: end: 20140401

REACTIONS (3)
  - Death [Fatal]
  - Platelet count decreased [Not Recovered/Not Resolved]
  - Full blood count decreased [Not Recovered/Not Resolved]
